FAERS Safety Report 6591032-6 (Version None)
Quarter: 2010Q1

REPORT INFORMATION
  Report Type: 
  Country: None (occurrence: None)
  Receive Date: 20100212
  Receipt Date: 20100201
  Transmission Date: 20100710
  Serious: Yes (Other)
  Sender: FDA-Public Use
  Company Number: 231127J10USA

PATIENT
  Age: 29 Year
  Sex: Female
  Weight: 61 kg

DRUGS (4)
  1. REBIF [Suspect]
     Indication: MULTIPLE SCLEROSIS
     Dosage: 44 MCG, 3 IN 1 WEEKS, SUBCUTANEOUS
     Route: 058
     Dates: start: 20090618
  2. ANTI-INFLAMMATORY MEDICATION (ALL OTHER THERAPEUTIC PRODUCTS) [Suspect]
  3. ALEVE [Concomitant]
  4. ORTHO TRI-CYCLEN [Concomitant]

REACTIONS (3)
  - CERVIX INFLAMMATION [None]
  - METRORRHAGIA [None]
  - SMEAR CERVIX ABNORMAL [None]
